FAERS Safety Report 21814747 (Version 1)
Quarter: 2023Q1

REPORT INFORMATION
  Report Type: Report from Study
  Country: US (occurrence: US)
  Receive Date: 20230104
  Receipt Date: 20230104
  Transmission Date: 20230418
  Serious: No
  Sender: FDA-Public Use
  Company Number: US-ABBVIE-4222266

PATIENT
  Age: 49 Year
  Sex: Female

DRUGS (2)
  1. SKYRIZI [Suspect]
     Active Substance: RISANKIZUMAB-RZAA
     Indication: Psoriasis
     Dosage: FORM STRENGTH: 150 MG, WEEK 0, ONE IN ONCE
     Route: 058
     Dates: start: 20220929, end: 20220929
  2. SKYRIZI [Suspect]
     Active Substance: RISANKIZUMAB-RZAA
     Dosage: WEEK 4, FORM STRENGTH: 150 MG
     Route: 058
     Dates: start: 20221029

REACTIONS (6)
  - Oropharyngeal pain [Recovering/Resolving]
  - Unevaluable event [Recovering/Resolving]
  - Hypersensitivity [Recovering/Resolving]
  - Speech disorder [Recovering/Resolving]
  - Dry throat [Recovering/Resolving]
  - Throat irritation [Recovering/Resolving]

NARRATIVE: CASE EVENT DATE: 20221128
